FAERS Safety Report 6562158-8 (Version None)
Quarter: 2010Q1

REPORT INFORMATION
  Report Type: 
  Country: None (occurrence: None)
  Receive Date: 20100130
  Receipt Date: 20091113
  Transmission Date: 20100710
  Serious: No
  Sender: FDA-Public Use
  Company Number: US-ABBOTT-09P-163-0605543-00

PATIENT
  Sex: Female
  Weight: 110.32 kg

DRUGS (3)
  1. HUMIRA [Suspect]
     Indication: COLITIS ULCERATIVE
     Dosage: 160MG; DAY 1
     Dates: start: 20091026, end: 20091026
  2. HUMIRA [Suspect]
     Dosage: 80MG ON DAY 15
     Dates: start: 20091109, end: 20091109
  3. UNKNOWN BLOOD PRESSURE MEDICATIONS X2 [Concomitant]
     Indication: BLOOD PRESSURE

REACTIONS (2)
  - INJECTION SITE PAIN [None]
  - VAGINAL DISORDER [None]
